FAERS Safety Report 14357077 (Version 1)
Quarter: 2018Q1

REPORT INFORMATION
  Report Type: Spontaneous
  Country: GR (occurrence: GR)
  Receive Date: 20180105
  Receipt Date: 20180105
  Transmission Date: 20180509
  Serious: Yes (Other)
  Sender: FDA-Public Use
  Company Number: GR-MYLANLABS-2018M1000905

PATIENT
  Sex: Female

DRUGS (4)
  1. LETROZOLE. [Suspect]
     Active Substance: LETROZOLE
     Dosage: UNK
  2. FASLODEX [Suspect]
     Active Substance: FULVESTRANT
     Indication: HER-2 POSITIVE BREAST CANCER
     Dosage: 500 MG, UNK
     Route: 065
     Dates: start: 201606, end: 201610
  3. NOLVADEX                           /00388701/ [Suspect]
     Active Substance: TAMOXIFEN CITRATE
     Indication: METASTASES TO BONE
     Dosage: UNK
  4. LETROZOLE. [Suspect]
     Active Substance: LETROZOLE
     Indication: HER-2 POSITIVE BREAST CANCER
     Dosage: 2.5 MG, UNK

REACTIONS (3)
  - Metastases to liver [Unknown]
  - Breast cancer [Unknown]
  - Metastases to bone [Unknown]
